FAERS Safety Report 9238665 (Version 1)
Quarter: 2013Q2

REPORT INFORMATION
  Report Type: Spontaneous
  Country: US (occurrence: US)
  Receive Date: 20130418
  Receipt Date: 20130418
  Transmission Date: 20140414
  Serious: Yes (Hospitalization, Other)
  Sender: FDA-Public Use
  Company Number: US-009507513-1304USA007318

PATIENT
  Age: 42 Year
  Sex: Female

DRUGS (2)
  1. INVANZ [Suspect]
     Indication: URINARY TRACT INFECTION
     Dosage: 1 GRAM DAILY
     Route: 042
     Dates: start: 20100816, end: 20100822
  2. INVANZ [Suspect]
     Indication: SEPSIS

REACTIONS (1)
  - Convulsion [Unknown]
